FAERS Safety Report 5018272-1 (Version None)
Quarter: 2006Q2

REPORT INFORMATION
  Report Type: 
  Country: None (occurrence: None)
  Receive Date: 20060530
  Receipt Date: 20060518
  Transmission Date: 20061013
  Serious: Yes (Death)
  Sender: FDA-Public Use
  Company Number: 2006059875

PATIENT
  Age: 63 Year
  Sex: Male
  Weight: 67 kg

DRUGS (4)
  1. DILANTIN [Suspect]
     Indication: EPILEPSY
     Dosage: 300 MG (300 MG, 1 IN 1 D), ORAL
     Route: 048
     Dates: start: 19831206, end: 19840305
  2. MELLARIL [Concomitant]
  3. TEGRETOL [Concomitant]
  4. EPILIM               (VALPROATE SODIUM) [Concomitant]

REACTIONS (5)
  - HEPATIC FAILURE [None]
  - JAUNDICE [None]
  - NEUTROPENIA [None]
  - PYREXIA [None]
  - RENAL FAILURE [None]
